FAERS Safety Report 7735017-2 (Version None)
Quarter: 2011Q3

REPORT INFORMATION
  Report Type: 
  Country: None (occurrence: None)
  Receive Date: 20110907
  Receipt Date: 20110902
  Transmission Date: 20111222
  Serious: Yes (Death, Other)
  Sender: FDA-Public Use
  Company Number: TN-SANOFI-AVENTIS-2011SA056963

PATIENT
  Age: 87 Year
  Sex: Female

DRUGS (7)
  1. CORDARONE [Concomitant]
     Route: 048
     Dates: end: 20110826
  2. VESSEL DUE [Concomitant]
     Route: 048
     Dates: end: 20110826
  3. PLAVIX [Suspect]
     Route: 048
     Dates: start: 20110706, end: 20110826
  4. VENOFER [Concomitant]
     Route: 048
     Dates: end: 20110826
  5. ASPEGIC 325 [Concomitant]
     Route: 048
     Dates: end: 20110826
  6. PLAVIX [Suspect]
     Route: 048
     Dates: start: 20110619, end: 20110628
  7. CALPEROS [Concomitant]
     Route: 048
     Dates: end: 20110826

REACTIONS (2)
  - SEPTIC SHOCK [None]
  - ISCHAEMIC STROKE [None]
